FAERS Safety Report 16984591 (Version 1)
Quarter: 2019Q4

REPORT INFORMATION
  Report Type: Spontaneous
  Country: US (occurrence: US)
  Receive Date: 20190917
  Receipt Date: 20190917
  Transmission Date: 20200122
  Serious: No
  Sender: FDA-Public Use
  Company Number: None

PATIENT
  Age: 53 Year

DRUGS (1)
  1. ACTEMRA ACTPEN [Suspect]
     Active Substance: TOCILIZUMAB
     Route: 058
     Dates: start: 201909

REACTIONS (3)
  - Off label use [None]
  - Arthralgia [None]
  - Rheumatoid arthritis [None]

NARRATIVE: CASE EVENT DATE: 20190917
